FAERS Safety Report 9454823 (Version 2)
Quarter: 2013Q3

REPORT INFORMATION
  Report Type: Spontaneous
  Country: US (occurrence: US)
  Receive Date: 20130812
  Receipt Date: 20130909
  Transmission Date: 20140515
  Serious: Yes (Death, Hospitalization, Other)
  Sender: FDA-Public Use
  Company Number: US-JNJFOC-20130805743

PATIENT
  Sex: 0

DRUGS (5)
  1. TYLENOL ANALGESIC UNKNOWN [Suspect]
     Indication: PAIN
     Route: 065
  2. TYLENOL ANALGESIC UNKNOWN [Suspect]
     Indication: PYREXIA
     Route: 065
  3. NAPROXEN [Suspect]
     Indication: PRODUCT USED FOR UNKNOWN INDICATION
  4. IBUPROFEN [Suspect]
  5. IBUPROFEN [Suspect]
     Indication: PRODUCT USED FOR UNKNOWN INDICATION

REACTIONS (10)
  - Liver injury [Fatal]
  - Rash [Fatal]
  - Blister [Fatal]
  - Stevens-Johnson syndrome [Fatal]
  - Epidermal necrosis [Fatal]
  - Acute generalised exanthematous pustulosis [Fatal]
  - Hypersensitivity [Fatal]
  - Amnesia [Fatal]
  - Brain injury [Fatal]
  - Overdose [Unknown]
